FAERS Safety Report 17369421 (Version 1)
Quarter: 2020Q1

REPORT INFORMATION
  Report Type: Spontaneous
  Country: US (occurrence: US)
  Receive Date: 20200121
  Receipt Date: 20200121
  Transmission Date: 20200409
  Serious: Yes (Hospitalization)
  Sender: FDA-Public Use
  Company Number: None

PATIENT
  Age: 51 Year
  Sex: Female

DRUGS (1)
  1. BOSENTAN 125MG TABLETS 60/BO TEVA [Suspect]
     Active Substance: BOSENTAN
     Indication: PULMONARY ARTERIAL HYPERTENSION
     Route: 048
     Dates: start: 20190625

REACTIONS (4)
  - Palpitations [None]
  - Productive cough [None]
  - Dyspnoea [None]
  - Atrial fibrillation [None]

NARRATIVE: CASE EVENT DATE: 20200114
